FAERS Safety Report 11186995 (Version 1)
Quarter: 2015Q2

REPORT INFORMATION
  Report Type: Report from Study
  Country: US (occurrence: US)
  Receive Date: 20150615
  Receipt Date: 20150615
  Transmission Date: 20150821
  Serious: Yes (Other)
  Sender: FDA-Public Use
  Company Number: US-ROCHE-1561773

PATIENT

DRUGS (1)
  1. RITUXIMAB [Suspect]
     Active Substance: RITUXIMAB
     Indication: PROPHYLAXIS AGAINST TRANSPLANT REJECTION
     Route: 065

REACTIONS (8)
  - Acute kidney injury [Recovered/Resolved]
  - Right ventricular dysfunction [Recovered/Resolved]
  - Seroma [Recovered/Resolved]
  - Aortic dissection [Not Recovered/Not Resolved]
  - Jugular vein thrombosis [Recovered/Resolved]
  - Abscess limb [Recovered/Resolved]
  - Fungal skin infection [Recovered/Resolved]
  - Mental status changes [Recovered/Resolved]

NARRATIVE: CASE EVENT DATE: 20130822
